FAERS Safety Report 9492525 (Version 2)
Quarter: 2014Q3

REPORT INFORMATION
  Report Type: Report from Study
  Country: MX (occurrence: MX)
  Receive Date: 20130830
  Receipt Date: 20140709
  Transmission Date: 20150326
  Serious: Yes (Other)
  Sender: FDA-Public Use
  Company Number: PHHY2013MX094730

PATIENT
  Age: 68 Year
  Sex: Female

DRUGS (5)
  1. DIOVAN [Suspect]
     Active Substance: VALSARTAN
     Indication: HYPERTENSION
     Dosage: 2 DF (80MG), DAILY
     Route: 048
     Dates: start: 200802, end: 200802
  2. DIOVAN [Suspect]
     Active Substance: VALSARTAN
     Dosage: 0.5 DF (160MG), BID (IN THE MORNING AND AT NIGHT)
     Route: 048
     Dates: start: 201307
  3. BONVIVA [Concomitant]
     Active Substance: IBANDRONATE SODIUM
     Indication: OSTEOPOROSIS
     Dosage: 1 DF, QMO
     Dates: start: 2011
  4. DIOVAN [Suspect]
     Active Substance: VALSARTAN
     Dosage: 0.5 DF (160MG), BID (IN THE MORNING AND AT NIGHT)
     Route: 048
     Dates: start: 200804, end: 201307
  5. DIOVAN [Suspect]
     Active Substance: VALSARTAN
     Dosage: 2 DF, DAILY (2 DF OF 160 MG DAILY)
     Route: 048

REACTIONS (11)
  - Abdominal pain upper [Recovered/Resolved]
  - Malaise [Recovered/Resolved]
  - Vomiting [Recovered/Resolved]
  - Wrong technique in drug usage process [Not Recovered/Not Resolved]
  - Blood pressure increased [Not Recovered/Not Resolved]
  - Stress [Unknown]
  - Dizziness [Recovered/Resolved]
  - Anxiety [Unknown]
  - Gastric infection [Recovered/Resolved]
  - Diarrhoea [Recovered/Resolved]
  - Nausea [Recovered/Resolved]

NARRATIVE: CASE EVENT DATE: 200802
